FAERS Safety Report 6933369-4 (Version None)
Quarter: 2010Q3

REPORT INFORMATION
  Report Type: 
  Country: None (occurrence: None)
  Receive Date: 20100818
  Receipt Date: 20100818
  Transmission Date: 20110219
  Serious: Yes (Other)
  Sender: FDA-Public Use
  Company Number: None

PATIENT
  Age: 64 Year
  Sex: Female
  Weight: 74.8435 kg

DRUGS (1)
  1. AMITRIPTYLINE HCL [Suspect]
     Indication: TENDON RUPTURE
     Dosage: 25 MG 1XD

REACTIONS (3)
  - FEAR [None]
  - FEELING ABNORMAL [None]
  - MEMORY IMPAIRMENT [None]
